FAERS Safety Report 19861081 (Version 1)
Quarter: 2021Q3

REPORT INFORMATION
  Report Type: Report from Study
  Country: US (occurrence: US)
  Receive Date: 20210921
  Receipt Date: 20210921
  Transmission Date: 20211014
  Serious: Yes (Other)
  Sender: FDA-Public Use
  Company Number: NVSC2021US210885

PATIENT
  Sex: Male

DRUGS (1)
  1. KESIMPTA [Suspect]
     Active Substance: OFATUMUMAB
     Indication: MULTIPLE SCLEROSIS
     Dosage: UNK UNK, QMO
     Route: 058

REACTIONS (6)
  - Mobility decreased [Recovering/Resolving]
  - Inappropriate affect [Recovering/Resolving]
  - Anxiety [Unknown]
  - Gait disturbance [Recovering/Resolving]
  - Seizure [Unknown]
  - Personality change [Recovering/Resolving]
